FAERS Safety Report 9143304 (Version 1)
Quarter: 2013Q1

REPORT INFORMATION
  Report Type: Spontaneous
  Country: US (occurrence: US)
  Receive Date: 20130306
  Receipt Date: 20130306
  Transmission Date: 20140127
  Serious: No
  Sender: FDA-Public Use
  Company Number: US-ENDO PHARMACEUTICALS INC.-OPER20120751

PATIENT
  Age: 36 None
  Sex: Female

DRUGS (6)
  1. OPANA ER 20MG [Suspect]
     Indication: MUSCULOSKELETAL PAIN
     Route: 048
     Dates: start: 201210
  2. OPANA ER 20MG [Suspect]
     Indication: NECK PAIN
  3. OPANA ER 20MG [Suspect]
     Indication: SPINAL PAIN
  4. METHADONE [Suspect]
     Indication: PRODUCT USED FOR UNKNOWN INDICATION
     Dosage: N/A
  5. OXYCODONE [Concomitant]
     Indication: BREAKTHROUGH PAIN
     Route: 048
  6. XANAX [Concomitant]
     Indication: ANXIETY
     Route: 048

REACTIONS (2)
  - Drug screen positive [Unknown]
  - Drug ineffective [Not Recovered/Not Resolved]
